FAERS Safety Report 13377189 (Version 2)
Quarter: 2018Q1

REPORT INFORMATION
  Report Type: Spontaneous
  Country: AU (occurrence: AU)
  Receive Date: 20170328
  Receipt Date: 20180131
  Transmission Date: 20180508
  Serious: Yes (Life-Threatening, Hospitalization, Other)
  Sender: FDA-Public Use
  Company Number: AU-MYLANLABS-2017M1017821

PATIENT
  Age: 67 Year
  Sex: Male

DRUGS (2)
  1. RISPERDAL CONSTA [Suspect]
     Active Substance: RISPERIDONE
     Indication: SCHIZOPHRENIA
     Dosage: 50 MG, BIWEEKLY
     Route: 030
     Dates: end: 201509
  2. CLOZAPINE. [Suspect]
     Active Substance: CLOZAPINE
     Indication: SCHIZOPHRENIA
     Dosage: 200 MG, QD
     Dates: start: 201509, end: 2015

REACTIONS (3)
  - Acute kidney injury [Recovered/Resolved]
  - Antipsychotic drug level increased [Recovering/Resolving]
  - Neuroleptic malignant syndrome [Recovered/Resolved]

NARRATIVE: CASE EVENT DATE: 2015
